FAERS Safety Report 18244551 (Version 1)
Quarter: 2020Q3

REPORT INFORMATION
  Report Type: Spontaneous
  Country: IN (occurrence: IN)
  Receive Date: 20200909
  Receipt Date: 20200909
  Transmission Date: 20201103
  Serious: Yes (Other)
  Sender: FDA-Public Use
  Company Number: IN-PFIZER INC-2020346678

PATIENT
  Age: 62 Year
  Sex: Male

DRUGS (6)
  1. SUNITINIB MALATE. [Suspect]
     Active Substance: SUNITINIB MALATE
     Dosage: 37.5 MG, CYCLIC (SCHEDULE 4/2)
     Dates: start: 200810, end: 201201
  2. SUNITINIB MALATE. [Suspect]
     Active Substance: SUNITINIB MALATE
     Dosage: 25 MG, CYCLIC (2/1 SCHEDULE)
  3. SUNITINIB MALATE. [Suspect]
     Active Substance: SUNITINIB MALATE
     Dosage: 37.5 MG, CYCLIC (4/2)
     Dates: start: 201205, end: 201305
  4. SUNITINIB MALATE. [Suspect]
     Active Substance: SUNITINIB MALATE
     Dosage: 50 MG, CYCLIC (OD FOR 4 WEEKS AND THEN 2 WEEKS GAP)
     Dates: start: 200809
  5. SUNITINIB MALATE. [Suspect]
     Active Substance: SUNITINIB MALATE
     Dosage: 25 MG, CYCLIC (SCHEDULE 4/2)
     Dates: start: 201309
  6. SUNITINIB MALATE. [Suspect]
     Active Substance: SUNITINIB MALATE
     Dosage: UNK
     Dates: start: 201308

REACTIONS (12)
  - Diarrhoea [Unknown]
  - Fatigue [Unknown]
  - Lipase increased [Unknown]
  - Palmar-plantar erythrodysaesthesia syndrome [Unknown]
  - Epistaxis [Unknown]
  - Blood pressure increased [Unknown]
  - Abdominal pain [Recovered/Resolved]
  - Skin disorder [Unknown]
  - Amylase increased [Unknown]
  - Dizziness [Unknown]
  - Asthenia [Unknown]
  - Parkinson^s disease [Unknown]

NARRATIVE: CASE EVENT DATE: 200810
